FAERS Safety Report 17875097 (Version 2)
Quarter: 2020Q2

REPORT INFORMATION
  Report Type: Spontaneous
  Country: US (occurrence: US)
  Receive Date: 20200609
  Receipt Date: 20200612
  Transmission Date: 20200714
  Serious: Yes (Disabling, Other)
  Sender: FDA-Public Use
  Company Number: NVSC2020US158674

PATIENT
  Age: 81 Year
  Sex: Female
  Weight: 54.43 kg

DRUGS (2)
  1. BEOVU [Suspect]
     Active Substance: BROLUCIZUMAB-DBLL
     Dosage: 6 MG (0.05 ML OF 120 MG/ML SOLUTION), QMO
     Route: 065
     Dates: end: 20200301
  2. BEOVU [Suspect]
     Active Substance: BROLUCIZUMAB-DBLL
     Indication: NEOVASCULAR AGE-RELATED MACULAR DEGENERATION
     Dosage: 6 MG (0.05 ML OF 120 MG/ML SOLUTION), QMO
     Route: 065
     Dates: start: 20200101

REACTIONS (2)
  - Retinal artery occlusion [Not Recovered/Not Resolved]
  - Blindness [Not Recovered/Not Resolved]

NARRATIVE: CASE EVENT DATE: 20200101
